FAERS Safety Report 13023018 (Version 1)
Quarter: 2016Q4

REPORT INFORMATION
  Report Type: Spontaneous
  Country: BE (occurrence: BE)
  Receive Date: 20161213
  Receipt Date: 20161213
  Transmission Date: 20170207
  Serious: Yes (Other)
  Sender: FDA-Public Use
  Company Number: BE-009507513-1612BEL003935

PATIENT

DRUGS (1)
  1. ESMERON [Suspect]
     Active Substance: ROCURONIUM BROMIDE
     Indication: SURGERY
     Dosage: UNK
     Dates: start: 20161205, end: 20161205

REACTIONS (1)
  - Airway complication of anaesthesia [Unknown]

NARRATIVE: CASE EVENT DATE: 20161205
